FAERS Safety Report 14241225 (Version 2)
Quarter: 2018Q1

REPORT INFORMATION
  Report Type: Report from Study
  Country: JP (occurrence: JP)
  Receive Date: 20171130
  Receipt Date: 20180205
  Transmission Date: 20180508
  Serious: Yes (Hospitalization, Other)
  Sender: FDA-Public Use
  Company Number: JP-PFM-2017-07382

PATIENT

DRUGS (4)
  1. PROPRANOLOL HYDROCHLORIDE. [Suspect]
     Active Substance: PROPRANOLOL HYDROCHLORIDE
     Dosage: UNK
     Route: 048
     Dates: start: 20170821
  2. PROPRANOLOL HYDROCHLORIDE. [Suspect]
     Active Substance: PROPRANOLOL HYDROCHLORIDE
     Dosage: 1.5 MG/KG, QD (1/DAY)
     Route: 048
     Dates: start: 20170925
  3. PROPRANOLOL HYDROCHLORIDE. [Suspect]
     Active Substance: PROPRANOLOL HYDROCHLORIDE
     Dosage: 1.5 MG/KG, QD (1/DAY)
     Route: 048
     Dates: start: 20170825, end: 20170911
  4. PROPRANOLOL HYDROCHLORIDE. [Suspect]
     Active Substance: PROPRANOLOL HYDROCHLORIDE
     Indication: INFANTILE HAEMANGIOMA
     Dosage: 3 MG/KG, UNK
     Route: 048
     Dates: start: 20170809, end: 20170818

REACTIONS (6)
  - Wheezing [Recovering/Resolving]
  - Drug titration error [Unknown]
  - Bronchial obstruction [Recovering/Resolving]
  - Cardiac murmur [Unknown]
  - Pneumonia respiratory syncytial viral [Recovered/Resolved]
  - Off label use [Unknown]

NARRATIVE: CASE EVENT DATE: 20170816
